FAERS Safety Report 19202736 (Version 1)
Quarter: 2021Q2

REPORT INFORMATION
  Report Type: Spontaneous
  Country: CN (occurrence: CN)
  Receive Date: 20210502
  Receipt Date: 20210502
  Transmission Date: 20210717
  Serious: Yes (Other)
  Sender: FDA-Public Use
  Company Number: NVSC2021CN095766

PATIENT
  Age: 86 Year
  Sex: Female
  Weight: 65 kg

DRUGS (1)
  1. AZOPT [Suspect]
     Active Substance: BRINZOLAMIDE
     Indication: GLAUCOMA
     Dosage: 1 DRP, QD
     Route: 047
     Dates: start: 20210313, end: 20210326

REACTIONS (4)
  - Eczema [Recovering/Resolving]
  - Ocular hyperaemia [Recovering/Resolving]
  - Localised oedema [Recovering/Resolving]
  - Perineal erythema [Recovering/Resolving]

NARRATIVE: CASE EVENT DATE: 20210326
